FAERS Safety Report 6765456-8 (Version None)
Quarter: 2010Q2

REPORT INFORMATION
  Report Type: 
  Country: None (occurrence: None)
  Receive Date: 20100611
  Receipt Date: 20100602
  Transmission Date: 20101027
  Serious: Yes (Other)
  Sender: FDA-Public Use
  Company Number: VE-PFIZER INC-2010069341

PATIENT
  Age: 69 Year
  Sex: Female
  Weight: 52.154 kg

DRUGS (3)
  1. ZOLOFT [Suspect]
     Indication: DEPRESSION
     Dosage: 25 MG, 1X/DAY
     Route: 048
     Dates: start: 20100414
  2. ZOLOFT [Suspect]
     Indication: ANXIETY
  3. LOPID [Suspect]
     Indication: HYPERCHOLESTEROLAEMIA
     Dosage: 600 MG, DAILY
     Route: 048
     Dates: start: 20100410, end: 20100422

REACTIONS (4)
  - ANXIETY [None]
  - BLOOD PRESSURE INCREASED [None]
  - FLATULENCE [None]
  - PANIC REACTION [None]
